FAERS Safety Report 23965943 (Version 1)
Quarter: 2024Q2

REPORT INFORMATION
  Report Type: Spontaneous
  Country: US (occurrence: None)
  Receive Date: 20240611
  Receipt Date: 20240611
  Transmission Date: 20240715
  Serious: Yes (Hospitalization)
  Sender: FDA-Public Use
  Company Number: None

PATIENT
  Sex: Male

DRUGS (2)
  1. RELYVRIO [Suspect]
     Active Substance: SODIUM PHENYLBUTYRATE\TAURURSODIOL
     Indication: Amyotrophic lateral sclerosis
     Dosage: OTHER QUANTITY : ONE PACKET?FREQUENCY : 2 TIMES A DAY ?OTHER ROUTE : ORAL OR GTUBE?
     Route: 050
     Dates: start: 202309, end: 20240412
  2. RADICAVA [Concomitant]

REACTIONS (2)
  - Aspiration [None]
  - Pneumonia [None]
